FAERS Safety Report 11811911 (Version 2)
Quarter: 2015Q4

REPORT INFORMATION
  Report Type: Spontaneous
  Country: US (occurrence: US)
  Receive Date: 20151208
  Receipt Date: 20151209
  Transmission Date: 20160305
  Serious: Yes (Other)
  Sender: FDA-Public Use
  Company Number: US-BAYER-2015-484252

PATIENT
  Age: 77 Year
  Sex: Female

DRUGS (6)
  1. BENEFIBER [Suspect]
     Active Substance: STARCH, WHEAT
     Indication: CONSTIPATION PROPHYLAXIS
     Dosage: UNK
     Dates: start: 2011
  2. DEXTRIN [Suspect]
     Active Substance: ICODEXTRIN
     Indication: CONSTIPATION PROPHYLAXIS
     Dosage: UNK
     Dates: start: 2011
  3. BENEFIBER [Suspect]
     Active Substance: STARCH, WHEAT
     Indication: CONSTIPATION PROPHYLAXIS
     Dosage: 2 TABLESPOONS
     Dates: start: 2011
  4. MIRALAX [Suspect]
     Active Substance: POLYETHYLENE GLYCOL 3350
     Dosage: UNK
     Dates: start: 2011
  5. POLYETHYLENE GLYCOL [Concomitant]
     Active Substance: POLYETHYLENE GLYCOLS
  6. DEXTRIN [Suspect]
     Active Substance: ICODEXTRIN
     Indication: CONSTIPATION PROPHYLAXIS
     Dosage: UNK
     Dates: start: 2011

REACTIONS (7)
  - Cerebrovascular accident [None]
  - Diverticulitis [None]
  - Gait disturbance [None]
  - Hemiparesis [None]
  - Intentional product misuse [None]
  - Musculoskeletal discomfort [None]
  - Musculoskeletal stiffness [None]
